FAERS Safety Report 8189653-2 (Version None)
Quarter: 2012Q1

REPORT INFORMATION
  Report Type: 
  Country: None (occurrence: None)
  Receive Date: 20120221
  Receipt Date: 20120109
  Transmission Date: 20120608
  Serious: No
  Sender: FDA-Public Use
  Company Number: 049401

PATIENT
  Age: 47 Year
  Sex: Male

DRUGS (1)
  1. LACOSAMIDE [Suspect]
     Dosage: (DOSE STRENGTH: 100MG: UNKNOWN DOSE FREQUENCY)

REACTIONS (2)
  - ACNE [None]
  - SEBORRHOEA [None]
